FAERS Safety Report 25126093 (Version 3)
Quarter: 2025Q2

REPORT INFORMATION
  Report Type: Spontaneous
  Country: JP (occurrence: JP)
  Receive Date: 20250326
  Receipt Date: 20250514
  Transmission Date: 20250717
  Serious: Yes (Hospitalization, Disabling, Other)
  Sender: BRISTOL-MYERS SQUIBB COMPANY
  Company Number: JP-BRISTOL-MYERS SQUIBB COMPANY-2025-043129

PATIENT
  Age: 82 Year
  Sex: Male

DRUGS (2)
  1. AUGTYRO [Suspect]
     Active Substance: REPOTRECTINIB
     Indication: Non-small cell lung cancer
     Route: 048
     Dates: start: 20250312
  2. AUGTYRO [Suspect]
     Active Substance: REPOTRECTINIB
     Route: 048

REACTIONS (7)
  - Dizziness [Recovered/Resolved]
  - Intracranial tumour haemorrhage [Unknown]
  - Subdural haematoma [Unknown]
  - Fall [Unknown]
  - Depressed level of consciousness [Unknown]
  - Hemiplegia [Unknown]
  - Delirium [Recovered/Resolved]

NARRATIVE: CASE EVENT DATE: 20250312
